FAERS Safety Report 7724567-0 (Version None)
Quarter: 2011Q3

REPORT INFORMATION
  Report Type: 
  Country: None (occurrence: None)
  Receive Date: 20110901
  Receipt Date: 20110823
  Transmission Date: 20111222
  Serious: Yes (Hospitalization)
  Sender: FDA-Public Use
  Company Number: US-ASTRAZENECA-2011SE45717

PATIENT
  Age: 50 Year
  Sex: Female
  Weight: 107.5 kg

DRUGS (4)
  1. ANTIDEPRESSANT [Concomitant]
  2. SEROQUEL [Suspect]
     Indication: BIPOLAR DISORDER
     Route: 048
  3. XANAX [Concomitant]
     Route: 048
  4. SEROQUEL [Suspect]
     Route: 048

REACTIONS (10)
  - MIDDLE INSOMNIA [None]
  - MALAISE [None]
  - WEIGHT INCREASED [None]
  - FATIGUE [None]
  - INCORRECT DOSE ADMINISTERED [None]
  - IMPAIRED SELF-CARE [None]
  - INSOMNIA [None]
  - SOCIAL AVOIDANT BEHAVIOUR [None]
  - OBESITY SURGERY [None]
  - ANXIETY [None]
